FAERS Safety Report 13820125 (Version 1)
Quarter: 2017Q3

REPORT INFORMATION
  Report Type: Spontaneous
  Country: US (occurrence: US)
  Receive Date: 20170801
  Receipt Date: 20170801
  Transmission Date: 20171127
  Serious: Yes (Other)
  Sender: FDA-Public Use
  Company Number: None

PATIENT
  Age: 60 Year
  Sex: Male
  Weight: 90.45 kg

DRUGS (7)
  1. VERAPAMIL [Concomitant]
     Active Substance: VERAPAMIL HYDROCHLORIDE
  2. TAPENTADOL [Suspect]
     Active Substance: TAPENTADOL
     Indication: PAIN MANAGEMENT
  3. VITAMIN D [Concomitant]
     Active Substance: CHOLECALCIFEROL
  4. SAW PALMETTO [Concomitant]
     Active Substance: HERBALS\SAW PALMETTO
  5. ZINC. [Concomitant]
     Active Substance: ZINC
  6. MAGNESIUM [Concomitant]
     Active Substance: MAGNESIUM
  7. TESTOSTERONE. [Concomitant]
     Active Substance: TESTOSTERONE

REACTIONS (3)
  - Anger [None]
  - Confusional state [None]
  - Vision blurred [None]

NARRATIVE: CASE EVENT DATE: 20170724
